FAERS Safety Report 11341612 (Version 2)
Quarter: 2015Q3

REPORT INFORMATION
  Report Type: Report from Study
  Country: BR (occurrence: BR)
  Receive Date: 20150805
  Receipt Date: 20150814
  Transmission Date: 20151125
  Serious: Yes (Death, Hospitalization)
  Sender: FDA-Public Use
  Company Number: PHHY2015BR092857

PATIENT
  Age: 91 Year
  Sex: Female
  Weight: 50 kg

DRUGS (1)
  1. FORASEQ [Suspect]
     Active Substance: BUDESONIDE\FORMOTEROL FUMARATE
     Indication: LUNG DISORDER
     Dosage: 12 UG OF FORMOTEROL FUMARATE AND 400 UG OF BUDESONIDE, BID (2 TABLETS MORNING, 2 TABLETS NIGHT)
     Route: 065
     Dates: end: 20150623

REACTIONS (5)
  - Product use issue [Unknown]
  - Lung disorder [Fatal]
  - Cardiac failure [Fatal]
  - Cardiac disorder [Fatal]
  - Pneumonia [Fatal]

NARRATIVE: CASE EVENT DATE: 20150714
